FAERS Safety Report 20183527 (Version 1)
Quarter: 2021Q4

REPORT INFORMATION
  Report Type: Spontaneous
  Country: US (occurrence: US)
  Receive Date: 20211214
  Receipt Date: 20211214
  Transmission Date: 20220303
  Serious: No
  Sender: FDA-Public Use
  Company Number: US-ABBVIE-20K-163-3690963-00

PATIENT

DRUGS (1)
  1. IMBRUVICA [Suspect]
     Active Substance: IBRUTINIB
     Indication: Chronic lymphocytic leukaemia
     Route: 048

REACTIONS (7)
  - Weight increased [Unknown]
  - White blood cell count abnormal [Unknown]
  - Lymphadenopathy [Unknown]
  - Fatigue [Unknown]
  - Arthralgia [Unknown]
  - Stomatitis [Unknown]
  - Nausea [Unknown]
